FAERS Safety Report 9702685 (Version 2)
Quarter: 2013Q4

REPORT INFORMATION
  Report Type: Spontaneous
  Country: US (occurrence: US)
  Receive Date: 20131121
  Receipt Date: 20131121
  Transmission Date: 20140711
  Serious: Yes (Death, Hospitalization)
  Sender: FDA-Public Use
  Company Number: US-BAXTER-2013BAX045319

PATIENT
  Sex: Male

DRUGS (3)
  1. DIANEAL LOW CALCIUM (ULTRABAG) [Suspect]
     Indication: RENAL FAILURE CHRONIC
     Route: 033
     Dates: start: 200901, end: 20131110
  2. DIANEAL LOW CALCIUM (ULTRABAG) [Suspect]
     Indication: RENAL FAILURE CHRONIC
     Route: 033
     Dates: start: 200901, end: 20131110
  3. DIANEAL LOW CALCIUM (ULTRABAG) [Suspect]
     Indication: RENAL FAILURE CHRONIC
     Route: 033
     Dates: start: 200901, end: 20131110

REACTIONS (5)
  - Myocardial infarction [Fatal]
  - Respiratory failure [Fatal]
  - Cardiac arrest [Fatal]
  - Cardiac disorder [Unknown]
  - Respiratory disorder [Unknown]
